FAERS Safety Report 7107652-6 (Version None)
Quarter: 2010Q4

REPORT INFORMATION
  Report Type: 
  Country: None (occurrence: None)
  Receive Date: 20101117
  Receipt Date: 20101105
  Transmission Date: 20110411
  Serious: Yes (Hospitalization)
  Sender: FDA-Public Use
  Company Number: US-ELI_LILLY_AND_COMPANY-US201009003286

PATIENT
  Sex: Male

DRUGS (7)
  1. FORTEO [Suspect]
     Indication: OSTEOPOROSIS
     Dosage: 20 UG, DAILY (1/D)
  2. DIOVAN [Concomitant]
  3. PRAVASTATIN [Concomitant]
  4. MECLIZINE [Concomitant]
  5. POTASSIUM CHLORIDE [Concomitant]
  6. NEXIUM [Concomitant]
  7. PREDNISONE [Concomitant]

REACTIONS (3)
  - CELLULITIS [None]
  - MUSCULAR WEAKNESS [None]
  - VERTIGO [None]
